FAERS Safety Report 4504087-7 (Version None)
Quarter: 2004Q4

REPORT INFORMATION
  Report Type: 
  Country: None (occurrence: None)
  Receive Date: 20041118
  Receipt Date: 20041109
  Transmission Date: 20050328
  Serious: Yes (Hospitalization)
  Sender: FDA-Public Use
  Company Number: US-JNJFOC-20040802175

PATIENT
  Sex: Female
  Weight: 85.28 kg

DRUGS (3)
  1. REMICADE [Suspect]
     Indication: RHEUMATOID ARTHRITIS
     Route: 042
  2. METHOTREXATE [Concomitant]
  3. HYDREA [Concomitant]

REACTIONS (4)
  - ARTHRALGIA [None]
  - CONDITION AGGRAVATED [None]
  - HAEMATOCRIT DECREASED [None]
  - SICKLE CELL ANAEMIA [None]
